FAERS Safety Report 8417565-5 (Version None)
Quarter: 2012Q2

REPORT INFORMATION
  Report Type: 
  Country: None (occurrence: None)
  Receive Date: 20120606
  Receipt Date: 20120529
  Transmission Date: 20120825
  Serious: Yes (Hospitalization)
  Sender: FDA-Public Use
  Company Number: GB-BAXTER-2011BH038101

PATIENT
  Sex: Male
  Weight: 12.5 kg

DRUGS (29)
  1. DACTINOMYCIN [Suspect]
     Indication: RHABDOMYOSARCOMA
     Route: 042
     Dates: start: 20111117
  2. OXYBUTYNIN [Concomitant]
     Route: 065
     Dates: start: 20111108, end: 20120124
  3. INSTILLAGEL [Concomitant]
     Route: 061
     Dates: start: 20111121
  4. ORAMORPH SR [Concomitant]
     Route: 065
     Dates: start: 20111124
  5. FENTANYL [Concomitant]
     Route: 061
     Dates: start: 20111216, end: 20120126
  6. VINCRISTINE [Suspect]
     Indication: RHABDOMYOSARCOMA
     Route: 042
     Dates: start: 20111117
  7. CO-TRIMAZOLE [Concomitant]
     Route: 065
  8. METOCLOPRAMIDE [Concomitant]
     Route: 065
     Dates: start: 20111121
  9. METANIUM [Concomitant]
     Route: 061
     Dates: start: 20111124
  10. FLUCONAZOLE [Concomitant]
     Route: 065
     Dates: start: 20111218
  11. TRIMETHOPRIM [Concomitant]
     Route: 065
  12. CETRABEN [Concomitant]
     Route: 061
     Dates: start: 20111211, end: 20120105
  13. PYRIDOXINE HCL [Concomitant]
     Route: 065
     Dates: start: 20111229
  14. IFOSFAMIDE [Suspect]
     Indication: RHABDOMYOSARCOMA
     Route: 042
     Dates: start: 20111117
  15. DOXORUBICIN HCL [Suspect]
     Indication: RHABDOMYOSARCOMA
     Route: 042
     Dates: start: 20111117
  16. ACETAMINOPHEN [Concomitant]
     Route: 065
     Dates: start: 20111122
  17. ACETAMINOPHEN [Concomitant]
     Route: 065
     Dates: start: 20111224
  18. BEVACIZUMAB [Suspect]
     Indication: RHABDOMYOSARCOMA
     Route: 042
     Dates: start: 20111117
  19. PHOSPHATE SANDOZ [Concomitant]
     Route: 065
  20. MOVIPREP [Concomitant]
     Route: 065
     Dates: start: 20111106
  21. PHOSPHATE SANDOZ [Concomitant]
     Route: 065
     Dates: start: 20120120
  22. GRANISETRON  HCL [Concomitant]
     Route: 065
     Dates: start: 20111231
  23. FLUCONAZOLE [Concomitant]
     Route: 065
     Dates: start: 20111125
  24. ORAMORPH SR [Concomitant]
     Route: 065
     Dates: start: 20120112
  25. CALAMINE [Concomitant]
     Route: 061
     Dates: start: 20111206
  26. ORAMORPH SR [Concomitant]
     Route: 065
     Dates: start: 20120104
  27. METOCLOPRAMIDE [Concomitant]
     Route: 065
  28. GRANISETRON  HCL [Concomitant]
     Route: 065
     Dates: start: 20111119
  29. CEPHALEXIN [Concomitant]
     Route: 065
     Dates: start: 20111211

REACTIONS (5)
  - FEBRILE NEUTROPENIA [None]
  - VOMITING [None]
  - WEIGHT DECREASED [None]
  - ABDOMINAL PAIN [None]
  - FLUID INTAKE REDUCED [None]
